FAERS Safety Report 9162366 (Version 1)
Quarter: 2013Q1

REPORT INFORMATION
  Report Type: Spontaneous
  Country: US (occurrence: US)
  Receive Date: 20130314
  Receipt Date: 20130314
  Transmission Date: 20140127
  Serious: Yes (Hospitalization, Other)
  Sender: FDA-Public Use
  Company Number: US-ASTELLAS-2013US000783

PATIENT
  Age: 75 None
  Sex: Female
  Weight: 63 kg

DRUGS (7)
  1. PROGRAF [Suspect]
     Indication: LIVER TRANSPLANT
     Dosage: UNK
     Route: 048
     Dates: start: 199110
  2. PROGRAF [Suspect]
     Dosage: 1 MG, TID
     Route: 048
  3. PROGRAF [Suspect]
     Dosage: 2 MG, UID/QD
     Route: 048
  4. PROGRAF [Suspect]
     Dosage: 3 MG, UID/QD
     Route: 048
  5. UNSPECIFIED [Suspect]
     Indication: GOUT
     Dosage: UNK
     Route: 065
  6. PREDNISONE [Suspect]
     Indication: PRODUCT USED FOR UNKNOWN INDICATION
     Dosage: 5 MG, UID/QD
     Route: 065
  7. BACTRIM [Suspect]
     Indication: ESCHERICHIA URINARY TRACT INFECTION
     Dosage: UNK
     Route: 065

REACTIONS (52)
  - Coronary artery disease [Unknown]
  - Ischaemic cardiomyopathy [Unknown]
  - Kidney fibrosis [Unknown]
  - Fibrocystic breast disease [Unknown]
  - Hyperthyroidism [Unknown]
  - Hypothyroidism [Unknown]
  - Spleen disorder [Unknown]
  - Retinal operation [Unknown]
  - Upper limb fracture [Unknown]
  - Meniere^s disease [Unknown]
  - Dehydration [Unknown]
  - Renal tubular necrosis [Unknown]
  - Diabetes mellitus [Unknown]
  - Hyperlipidaemia [Unknown]
  - Hyperkalaemia [Recovered/Resolved]
  - Renal failure chronic [Unknown]
  - Peptic ulcer [Unknown]
  - Pneumonia [Unknown]
  - Hypertension [Unknown]
  - Thrombocytopenia [Unknown]
  - Atrial fibrillation [Unknown]
  - Hepatic steatosis [Unknown]
  - Acidosis [Unknown]
  - Visual impairment [Unknown]
  - Dysphagia [Unknown]
  - Toxicity to various agents [Unknown]
  - Renal failure acute [Unknown]
  - Nausea [Unknown]
  - Vomiting [Unknown]
  - Metabolic acidosis [Unknown]
  - Escherichia urinary tract infection [Unknown]
  - Haematuria [Unknown]
  - Anaemia [Unknown]
  - Gastrointestinal haemorrhage [Unknown]
  - Laceration [Unknown]
  - Arthritis [Unknown]
  - Vitamin B12 deficiency [Unknown]
  - Vitamin D deficiency [Unknown]
  - Osteopenia [Unknown]
  - Mucosal inflammation [Unknown]
  - Oral candidiasis [Unknown]
  - Hypoglycaemia [Unknown]
  - Bronchitis [Unknown]
  - Muscular weakness [Unknown]
  - Pharyngitis [Unknown]
  - Diarrhoea [Unknown]
  - Generalised anxiety disorder [Unknown]
  - Gout [Unknown]
  - Pollakiuria [Unknown]
  - Intertrigo candida [Unknown]
  - Gastrooesophageal reflux disease [Unknown]
  - Fall [Recovered/Resolved]
